FAERS Safety Report 6883781-7 (Version None)
Quarter: 2010Q3

REPORT INFORMATION
  Report Type: 
  Country: None (occurrence: None)
  Receive Date: 20100729
  Receipt Date: 20100714
  Transmission Date: 20110219
  Serious: Yes (Other)
  Sender: FDA-Public Use
  Company Number: CA-PFIZER INC-2010088349

PATIENT
  Age: 44 Year
  Sex: Female

DRUGS (6)
  1. LYRICA [Suspect]
     Dosage: 100 MG, 2X/DAY
     Dates: start: 20100501
  2. ARTHROTEC [Suspect]
     Dosage: 75 MG, 2X/DAY
     Dates: start: 20100501
  3. CYCLOBENZAPRINE [Concomitant]
     Dosage: 5-10 MG AT BEDTIME
     Dates: start: 20100501
  4. BUPROPION [Concomitant]
     Dosage: UNK
  5. OLANZAPINE [Concomitant]
     Dosage: UNK
  6. DIVALPROEX SODIUM [Concomitant]
     Dosage: UNK

REACTIONS (3)
  - ABDOMINAL PAIN [None]
  - HEPATITIS [None]
  - HEPATOMEGALY [None]
